FAERS Safety Report 18273525 (Version 14)
Quarter: 2021Q2

REPORT INFORMATION
  Report Type: Report from Study
  Country: CA (occurrence: CA)
  Receive Date: 20200916
  Receipt Date: 20210416
  Transmission Date: 20210717
  Serious: Yes (Hospitalization, Other)
  Sender: FDA-Public Use
  Company Number: CA-JNJFOC-20200912932

PATIENT
  Age: 27 Year
  Sex: Female
  Weight: 46 kg

DRUGS (3)
  1. REMICADE [Suspect]
     Active Substance: INFLIXIMAB
     Indication: ANKYLOSING SPONDYLITIS
     Route: 042
     Dates: start: 20200210
  2. METHOTREXATE. [Concomitant]
     Active Substance: METHOTREXATE
     Indication: PRODUCT USED FOR UNKNOWN INDICATION
     Route: 065
  3. REMICADE [Suspect]
     Active Substance: INFLIXIMAB
     Indication: CROHN^S DISEASE

REACTIONS (8)
  - Clostridium difficile infection [Recovering/Resolving]
  - Haematochezia [Unknown]
  - Arthralgia [Recovering/Resolving]
  - Infection [Recovered/Resolved]
  - Nausea [Recovered/Resolved]
  - Crohn^s disease [Recovered/Resolved]
  - Dyspepsia [Recovered/Resolved]
  - Uveitis [Recovered/Resolved]

NARRATIVE: CASE EVENT DATE: 2020
